FAERS Safety Report 7469243-7 (Version None)
Quarter: 2011Q2

REPORT INFORMATION
  Report Type: 
  Country: None (occurrence: None)
  Receive Date: 20110510
  Receipt Date: 20110503
  Transmission Date: 20111010
  Serious: Yes (Other)
  Sender: FDA-Public Use
  Company Number: GB-ASTELLAS-2011EU002166

PATIENT
  Sex: Female
  Weight: 64 kg

DRUGS (5)
  1. SIMVASTATIN [Concomitant]
     Indication: HYPERCHOLESTEROLAEMIA
     Dosage: 20 MG, UNKNOWN/D
     Route: 048
     Dates: start: 20080222
  2. VESICARE [Suspect]
     Indication: HYPERTONIC BLADDER
     Dosage: 5 MG, UNKNOWN/D
     Route: 048
     Dates: start: 20110118, end: 20110101
  3. LANSOPRAZOLE [Concomitant]
     Dosage: 30 MG, UID/QD
     Route: 048
  4. MIRTAZAPINE [Concomitant]
     Indication: DEPRESSION
     Dosage: 15 MG, UNKNOWN/D
     Route: 048
  5. COLOFAC [Concomitant]
     Dosage: 135 MG, UID/QD
     Route: 048

REACTIONS (6)
  - CONSTIPATION [None]
  - DECREASED APPETITE [None]
  - SOMNOLENCE [None]
  - FATIGUE [None]
  - DYSGEUSIA [None]
  - DRY MOUTH [None]
